FAERS Safety Report 14627843 (Version 3)
Quarter: 2020Q4

REPORT INFORMATION
  Report Type: Spontaneous
  Country: US (occurrence: US)
  Receive Date: 20180312
  Receipt Date: 20201211
  Transmission Date: 20210113
  Serious: Yes (Other)
  Sender: FDA-Public Use
  Company Number: US-BAUSCH-BL-2018-006129

PATIENT
  Age: 46 Year
  Sex: Female

DRUGS (95)
  1. NASACORT [Concomitant]
     Active Substance: TRIAMCINOLONE ACETONIDE
     Indication: HYPERSENSITIVITY
     Dosage: 2 SPRAYS IN EACH NOSTRIL ATLEAST TWICE A DAY
     Route: 045
  2. NASACORT [Concomitant]
     Active Substance: TRIAMCINOLONE ACETONIDE
     Indication: VOCAL CORD DYSFUNCTION
  3. ULTRANUTRIENT [Concomitant]
     Indication: PRODUCT USED FOR UNKNOWN INDICATION
     Dosage: 3 PILLS IN AM
  4. AMITRIPTYLINE [Concomitant]
     Active Substance: AMITRIPTYLINE
     Indication: DEPRESSION
  5. CARVEDILOL. [Concomitant]
     Active Substance: CARVEDILOL
     Indication: PALPITATIONS
  6. CLONAZEPAM. [Concomitant]
     Active Substance: CLONAZEPAM
     Indication: ANXIETY
     Dosage: 1 TAB BEDTIME
  7. CREON [Concomitant]
     Active Substance: PANCRELIPASE AMYLASE\PANCRELIPASE LIPASE\PANCRELIPASE PROTEASE
     Indication: DYSPEPSIA
  8. DESVENLAFAXINE. [Concomitant]
     Active Substance: DESVENLAFAXINE
     Indication: ANXIETY
     Dosage: 1 PILL IN THE AFTERNOON
  9. FLUCONAZOLE. [Concomitant]
     Active Substance: FLUCONAZOLE
     Indication: INCONTINENCE
  10. TORSEMIDE. [Concomitant]
     Active Substance: TORSEMIDE
     Indication: CARDIAC FAILURE CONGESTIVE
  11. VITAMIN B12 [Concomitant]
     Active Substance: CYANOCOBALAMIN
     Indication: ROUTINE HEALTH MAINTENANCE
  12. B2 (RIBOFLAVIN-5-PHOSPHATE) [Concomitant]
     Indication: DYSPEPSIA
  13. B6 (P5P 50) [Concomitant]
     Indication: ROUTINE HEALTH MAINTENANCE
  14. BCQ [Concomitant]
     Indication: ANTIALLERGIC THERAPY
     Dosage: 2 CAPS BEFORE BREAKFAST AND 2 CAPS BEFORE DINNER
  15. POTASSIUM CITRATE. [Concomitant]
     Active Substance: POTASSIUM CITRATE
     Indication: ILL-DEFINED DISORDER
  16. AMITIZA [Concomitant]
     Active Substance: LUBIPROSTONE
     Indication: PRODUCT USED FOR UNKNOWN INDICATION
     Dosage: 1 TAB IN THE MORNING, 1 TAB IN THE AFTERNOON AND 1 TAB IN THE EVENING
  17. FLUCONAZOLE. [Concomitant]
     Active Substance: FLUCONAZOLE
     Indication: FUNGAL INFECTION
  18. NEOMYCIN. [Concomitant]
     Active Substance: NEOMYCIN
     Indication: HEPATIC ENCEPHALOPATHY
     Dosage: 0.5 PILL IN MORNING AND 0.5 PILL IN AFTERNOON
  19. TORSEMIDE. [Concomitant]
     Active Substance: TORSEMIDE
     Indication: FLUID RETENTION
  20. ZOFRAN [Concomitant]
     Active Substance: ONDANSETRON HYDROCHLORIDE
     Indication: PROPHYLAXIS
     Dosage: AS NEEDED
  21. PROMETHAZINE [Concomitant]
     Active Substance: PROMETHAZINE HYDROCHLORIDE
     Indication: CONSTIPATION
  22. VITAMIN B12 [Concomitant]
     Active Substance: CYANOCOBALAMIN
     Indication: NEURALGIA
  23. GAS RELIEF [Concomitant]
     Active Substance: DIMETHICONE
     Indication: PRODUCT USED FOR UNKNOWN INDICATION
  24. MAGNESIUM [Concomitant]
     Active Substance: MAGNESIUM
     Indication: MALABSORPTION
  25. SACCHAROMYCES BOULARDII [Concomitant]
     Active Substance: SACCHAROMYCES CEREVISIAE
     Indication: ILL-DEFINED DISORDER
     Dosage: 1 PILL IN AFT
  26. XIFAXAN [Suspect]
     Active Substance: RIFAXIMIN
     Indication: LIVER DISORDER
     Route: 048
     Dates: end: 201802
  27. AMITRIPTYLINE [Concomitant]
     Active Substance: AMITRIPTYLINE
     Indication: ANXIETY
     Dosage: 1 PILL BEDTIME
  28. BUSPIRONE [Concomitant]
     Active Substance: BUSPIRONE HYDROCHLORIDE
     Indication: ANXIETY
  29. LANTUS (LONG ACTING INSULIN) [Concomitant]
     Indication: DIABETES MELLITUS
     Dosage: 16 UNITS GIVEN EVERY MORNING
  30. LEVOTHYROXINE. [Concomitant]
     Active Substance: LEVOTHYROXINE
     Indication: HYPOTHYROIDISM
     Dosage: 1 AM
  31. METFORMIN [Concomitant]
     Active Substance: METFORMIN HYDROCHLORIDE
     Indication: DIABETES MELLITUS
  32. MONTELUKAST SODIUM. [Concomitant]
     Active Substance: MONTELUKAST SODIUM
     Indication: HYPERSENSITIVITY
     Dosage: 1 PILL IN PM
  33. PYRIDOSTIGMINE [Concomitant]
     Active Substance: PYRIDOSTIGMINE
     Indication: ABDOMINAL DISTENSION
  34. TRULANCE [Concomitant]
     Active Substance: PLECANATIDE
     Indication: CONSTIPATION
     Dosage: 1 IN AFTERNOON AND 1 IN PM
  35. EPIPEN [Concomitant]
     Active Substance: EPINEPHRINE
     Indication: HYPERSENSITIVITY
     Dosage: AS NEEDED
  36. IPRATROPIUM/ALBUTEROL [Concomitant]
     Active Substance: ALBUTEROL\IPRATROPIUM
     Indication: ASTHMA
     Dosage: AS NEEDED?(3 ML, 60 VLS)
  37. PROMETHAZINE [Concomitant]
     Active Substance: PROMETHAZINE HYDROCHLORIDE
     Indication: NAUSEA
  38. B2 (NATURE^S WAY) [Concomitant]
     Indication: AMINO ACID LEVEL DECREASED
  39. B6 (P5P 50) [Concomitant]
     Indication: DYSPEPSIA
     Dosage: 1 IN PM
  40. CANDIDA RELIEF [Concomitant]
     Indication: PRODUCT USED FOR UNKNOWN INDICATION
     Dosage: 1 CAPSULE AM, AFT, PM AND BEDTIME
  41. COQ10 GUMMIES [Concomitant]
     Indication: ROUTINE HEALTH MAINTENANCE
     Dosage: 1 PILL AT BEDTIME
  42. THIAMINE. [Concomitant]
     Active Substance: THIAMINE
     Indication: PRODUCT USED FOR UNKNOWN INDICATION
  43. XIFAXAN [Suspect]
     Active Substance: RIFAXIMIN
     Indication: HEPATIC ENCEPHALOPATHY
     Route: 048
     Dates: end: 2019
  44. COLESTIPOL [Concomitant]
     Active Substance: COLESTIPOL
     Indication: ILL-DEFINED DISORDER
     Dosage: 1 PILL AM, 1 PILL IN THE AFTERNOON AND 1 TAB PM
  45. VOLTAREN [DICLOFENAC] [Concomitant]
     Active Substance: DICLOFENAC SODIUM
     Indication: PAIN
     Dosage: USE AS NEED FOR PAIN
  46. METOLAZONE. [Concomitant]
     Active Substance: METOLAZONE
     Indication: CARDIAC FAILURE CONGESTIVE
  47. NEOMYCIN. [Concomitant]
     Active Substance: NEOMYCIN
     Indication: AMMONIA INCREASED
  48. NOVOLIN R INSULIN [Concomitant]
     Indication: DIABETES MELLITUS
     Dosage: 10 TO 36 UNITS BASED ON SLIDING SCALE?30 MINUTES PRIOR TO AFTERNOON AND EVENING MEAL
  49. NYSTATIN. [Concomitant]
     Active Substance: NYSTATIN
     Indication: FUNGAL TEST POSITIVE
     Dosage: 1 IN AM, 1 IN AFTERNOON AND 1 IN PM
  50. POTASSIUM CHLORIDE. [Concomitant]
     Active Substance: POTASSIUM CHLORIDE
     Indication: HYPOKALAEMIA
     Dosage: 8 TABLETS DISSOLVED IN JUICE AND INGESTED THROUGHOUT EACH DAY
  51. PRAMIPEXOLE. [Concomitant]
     Active Substance: PRAMIPEXOLE
     Indication: RESTLESS LEGS SYNDROME
  52. SOLIFENACIN [Concomitant]
     Active Substance: SOLIFENACIN
     Indication: INCONTINENCE
     Dosage: 1 PILL IN AM
  53. LEVALBUTEROL. [Concomitant]
     Active Substance: LEVALBUTEROL
     Indication: ASTHMA
     Dosage: RESCUE INHALER 2 PUFFS AS NEEDED
  54. SODIUM BUTYRATE. [Concomitant]
     Active Substance: SODIUM BUTYRATE
     Indication: AMMONIA INCREASED
     Dosage: 1 DAILY AT BEDTIME
  55. AMITRIPTYLINE [Concomitant]
     Active Substance: AMITRIPTYLINE
     Indication: NEURALGIA
  56. CLONAZEPAM. [Concomitant]
     Active Substance: CLONAZEPAM
     Dosage: 1 TAB BEDTIME
  57. GABAPENTIN. [Concomitant]
     Active Substance: GABAPENTIN
     Indication: NEURALGIA
  58. HYDROXYZINE (ANTIHISTAMINE) [Concomitant]
     Indication: HYPERSENSITIVITY
     Dosage: 3 TABS IN PM
  59. LINZESS [Concomitant]
     Active Substance: LINACLOTIDE
     Indication: IRRITABLE BOWEL SYNDROME
  60. METOLAZONE. [Concomitant]
     Active Substance: METOLAZONE
     Indication: FLUID RETENTION
  61. PYRIDOSTIGMINE [Concomitant]
     Active Substance: PYRIDOSTIGMINE
     Indication: ABDOMINAL PAIN
  62. PYRIDOSTIGMINE [Concomitant]
     Active Substance: PYRIDOSTIGMINE
     Indication: DYSPEPSIA
  63. SPIRONOLACTONE. [Concomitant]
     Active Substance: SPIRONOLACTONE
     Indication: CARDIAC FAILURE CONGESTIVE
     Dosage: 2 IN AM AND 2 BEFORE DINNER
  64. OXYCODONE [Concomitant]
     Active Substance: OXYCODONE
     Indication: PAIN
  65. B12-FOLATE [Concomitant]
     Indication: ROUTINE HEALTH MAINTENANCE
  66. ZN ZYME FORTE [Concomitant]
     Indication: PRODUCT USED FOR UNKNOWN INDICATION
     Dosage: 2 PILLS IN AFTERNOON
  67. AMITRIPTYLINE [Concomitant]
     Active Substance: AMITRIPTYLINE
     Indication: INSOMNIA
  68. AZELASTINE HCL [Concomitant]
     Active Substance: AZELASTINE HYDROCHLORIDE
     Indication: HYPERSENSITIVITY
     Dosage: 1 SPRAY IN EACH NOSTRIL TWICE A DAY
  69. LINZESS [Concomitant]
     Active Substance: LINACLOTIDE
     Indication: CONSTIPATION
     Dosage: 1 CAPSULE 30 MIN BEFORE FIRST MEAL OF THE DAY
  70. PROMETHAZINE [Concomitant]
     Active Substance: PROMETHAZINE HYDROCHLORIDE
     Indication: NEPHROLITHIASIS
  71. ALL CLEAR [Concomitant]
     Active Substance: ALCOHOL
     Indication: ANTIALLERGIC THERAPY
     Dosage: 1 TAB PM
  72. ALPHA LIPOIC ACID [Concomitant]
     Active Substance: .ALPHA.-LIPOIC ACID
     Indication: NEURALGIA
     Dosage: 1 PILL AM AND 1 PILL AT BEDTIME
  73. B12-FOLATE [Concomitant]
     Indication: NEURALGIA
     Dosage: CHEWABLES?1 IN PM
  74. AZELASTINE HCL [Concomitant]
     Active Substance: AZELASTINE HYDROCHLORIDE
     Indication: VOCAL CORD DYSFUNCTION
  75. CARVEDILOL. [Concomitant]
     Active Substance: CARVEDILOL
     Indication: HYPERTENSION
     Dosage: 1 PILL AM AND 1 PILL PM
  76. ESTRADIOL. [Concomitant]
     Active Substance: ESTRADIOL
     Indication: DYSURIA
     Dosage: APPLIED 2 TIMES A WEEK IN THE EVENING
  77. ESTRADIOL. [Concomitant]
     Active Substance: ESTRADIOL
     Indication: INCONTINENCE
  78. SPIRONOLACTONE. [Concomitant]
     Active Substance: SPIRONOLACTONE
     Indication: FLUID RETENTION
  79. IPRATROPIUM/ALBUTEROL [Concomitant]
     Active Substance: ALBUTEROL\IPRATROPIUM
     Indication: HYPERSENSITIVITY
  80. NYSTATIN. [Concomitant]
     Active Substance: NYSTATIN
     Indication: ORAL CANDIDIASIS
     Dosage: AS NEEDED
  81. GABAPENTIN. [Concomitant]
     Active Substance: GABAPENTIN
     Indication: NEURALGIA
     Dosage: AS NEEDED
  82. B2 (NATURE^S WAY) [Concomitant]
     Indication: TISSUE INJURY
  83. BENADRYL [Concomitant]
     Active Substance: DIPHENHYDRAMINE HYDROCHLORIDE
     Indication: PRODUCT USED FOR UNKNOWN INDICATION
     Dosage: 1 TO 2 PILLS EVERY 4 TO 6 HOURS AS NEEDED
  84. CALCIUM [Concomitant]
     Active Substance: CALCIUM
     Indication: PRODUCT USED FOR UNKNOWN INDICATION
     Dosage: 1 PILL AM, AFTERNOON AND PM
  85. NAC [Concomitant]
     Indication: ILL-DEFINED DISORDER
     Dosage: 1 PILL IN PM
  86. DOCUSATE SODIUM. [Concomitant]
     Active Substance: DOCUSATE SODIUM
     Indication: CONSTIPATION
  87. BREO ELLIPTA [Concomitant]
     Active Substance: FLUTICASONE FUROATE\VILANTEROL TRIFENATATE
     Indication: ASTHMA
     Dosage: 1 PUFF DAILY
  88. VITAMIN D 2 [Concomitant]
     Indication: VITAMIN D DECREASED
  89. ESOMEPRAZOLE. [Concomitant]
     Active Substance: ESOMEPRAZOLE MAGNESIUM
     Indication: GASTROOESOPHAGEAL REFLUX DISEASE
     Dosage: 1 PILL 30 MIN BEFORE BREAKFAST AND 1 PILL BEFORE DINNER
  90. ESOMEPRAZOLE. [Concomitant]
     Active Substance: ESOMEPRAZOLE MAGNESIUM
     Indication: VOCAL CORD DYSFUNCTION
  91. SOLIFENACIN [Concomitant]
     Active Substance: SOLIFENACIN
     Indication: HYPERTONIC BLADDER
  92. IPRATROPIUM/ALBUTEROL [Concomitant]
     Active Substance: ALBUTEROL\IPRATROPIUM
     Indication: DYSPNOEA
  93. PROMETHAZINE [Concomitant]
     Active Substance: PROMETHAZINE HYDROCHLORIDE
     Indication: ABDOMINAL DISTENSION
  94. CETRIZINE [Concomitant]
     Active Substance: CETIRIZINE HYDROCHLORIDE
     Indication: HYPERSENSITIVITY
     Dosage: 2 TABS AM AND AS ADDITIONAL AS NEEDED
  95. FISH OIL OMEGA 3 PLUS [Concomitant]
     Indication: ROUTINE HEALTH MAINTENANCE
     Dosage: 1 IN AFT AND 1 IN PM

REACTIONS (14)
  - Neuropathy peripheral [Unknown]
  - Cataract [Unknown]
  - Hepatic encephalopathy [Not Recovered/Not Resolved]
  - Pleural effusion [Unknown]
  - Diabetes mellitus [Unknown]
  - Breast cancer [Unknown]
  - Facial paralysis [Not Recovered/Not Resolved]
  - Inability to afford medication [Unknown]
  - Therapy interrupted [Unknown]
  - Cardiac failure congestive [Unknown]
  - Gastrointestinal disorder [Unknown]
  - Hepatic cirrhosis [Unknown]
  - Constipation [Unknown]
  - Symptom recurrence [Unknown]

NARRATIVE: CASE EVENT DATE: 201802
